FAERS Safety Report 6502858-9 (Version None)
Quarter: 2009Q4

REPORT INFORMATION
  Report Type: 
  Country: None (occurrence: None)
  Receive Date: 20091217
  Receipt Date: 20091207
  Transmission Date: 20100525
  Serious: Yes (Hospitalization)
  Sender: FDA-Public Use
  Company Number: FR-SOLVAY-00209007665

PATIENT
  Age: 35471 Day
  Sex: Female

DRUGS (6)
  1. COVERSYL 2MG [Suspect]
     Indication: HYPERTENSION
     Dosage: DAILY DOSE: 2 MILLIGRAM(S)
     Route: 048
     Dates: start: 20081001
  2. PREVISCAN [Concomitant]
     Indication: DRUG USE FOR UNKNOWN INDICATION
     Dosage: DAILY DOSE:  UNKNOWN
     Route: 065
  3. DIGITALINE NATIVELLE [Suspect]
     Indication: ARRHYTHMIA
     Dosage: DAILY DOSE: .25 MILLIGRAM(S)
     Route: 048
     Dates: end: 20090329
  4. LAMALINE [Concomitant]
     Indication: DRUG USE FOR UNKNOWN INDICATION
     Dosage: DAILY DOSE:  UNKNOWN
     Route: 065
  5. LASILIX [Suspect]
     Indication: HYPERTENSION
     Dosage: DAILY DOSE: 250 MILLIGRAM(S)
     Route: 048
     Dates: end: 20090329
  6. LASILIX [Suspect]
     Dosage: DAILY DOSE: 40 MILLIGRAM(S)
     Route: 065
     Dates: start: 20090329

REACTIONS (7)
  - BRADYCARDIA [None]
  - DEHYDRATION [None]
  - ECCHYMOSIS [None]
  - FALL [None]
  - OVERDOSE [None]
  - RENAL FAILURE [None]
  - TROPONIN INCREASED [None]
